FAERS Safety Report 21516616 (Version 1)
Quarter: 2022Q4

REPORT INFORMATION
  Report Type: Spontaneous
  Country: US (occurrence: None)
  Receive Date: 20221027
  Receipt Date: 20221027
  Transmission Date: 20230113
  Serious: Yes (Death)
  Sender: FDA-Public Use
  Company Number: None

PATIENT
  Age: 67 Year
  Sex: Male
  Weight: 56.7 kg

DRUGS (13)
  1. TEMOZOLOMIDE [Suspect]
     Active Substance: TEMOZOLOMIDE
     Indication: Brain neoplasm malignant
     Dosage: FREQUENCY : DAILY;?
     Route: 048
  2. TEMOZOLOMIDE [Suspect]
     Active Substance: TEMOZOLOMIDE
     Indication: Brain neoplasm malignant
     Dosage: FREQUENCY : DAILY;?
     Route: 048
  3. ASPIRIN [Concomitant]
     Active Substance: ASPIRIN
  4. BACTRIM DS [Concomitant]
     Active Substance: SULFAMETHOXAZOLE\TRIMETHOPRIM
  5. IBUPROFEN [Concomitant]
     Active Substance: IBUPROFEN
  6. LOSARTAN [Concomitant]
     Active Substance: LOSARTAN
  7. MODERNA COVID-19 [Concomitant]
  8. MORPHINE [Concomitant]
     Active Substance: MORPHINE
  9. MULTIVITAMIN [Concomitant]
  10. ONDANSETRON [Concomitant]
     Active Substance: ONDANSETRON
  11. PERCOCET [Concomitant]
     Active Substance: ACETAMINOPHEN\OXYCODONE HYDROCHLORIDE
  12. PROSCAR [Concomitant]
     Active Substance: FINASTERIDE
  13. XANAX [Concomitant]
     Active Substance: ALPRAZOLAM

REACTIONS (1)
  - Death [None]
